FAERS Safety Report 4703144-X (Version None)
Quarter: 2005Q2

REPORT INFORMATION
  Report Type: 
  Country: None (occurrence: None)
  Receive Date: 20050629
  Receipt Date: 20050623
  Transmission Date: 20051028
  Serious: Yes (Death)
  Sender: FDA-Public Use
  Company Number: NL-GLAXOSMITHKLINE-B0386131A

PATIENT
  Age: 83 Year
  Sex: Female

DRUGS (2)
  1. ROSIGLITAZONE MALEATE [Suspect]
     Dosage: 8MG PER DAY
     Dates: start: 20050616, end: 20050619
  2. INSULIN [Concomitant]

REACTIONS (3)
  - ADVERSE EVENT [None]
  - MALAISE [None]
  - PNEUMONIA [None]
